FAERS Safety Report 7201686-9 (Version None)
Quarter: 2010Q4

REPORT INFORMATION
  Report Type: 
  Country: None (occurrence: None)
  Receive Date: 20101229
  Receipt Date: 20101220
  Transmission Date: 20110411
  Serious: Yes (Life-Threatening, Hospitalization)
  Sender: FDA-Public Use
  Company Number: US-ROCHE-545820

PATIENT
  Sex: Male
  Weight: 71.7 kg

DRUGS (19)
  1. BEVACIZUMAB [Suspect]
     Indication: NON-SMALL CELL LUNG CANCER
     Dosage: 1050 MG, Q3W
     Route: 042
     Dates: start: 20070619
  2. ERLOTINIB [Suspect]
     Indication: NON-SMALL CELL LUNG CANCER
     Dosage: 150 MG, QD
     Route: 048
     Dates: start: 20070912
  3. PARAPLATIN [Suspect]
     Indication: NON-SMALL CELL LUNG CANCER
     Dosage: 683 MG, Q3W
     Route: 042
     Dates: start: 20070619
  4. TAXOL [Suspect]
     Indication: NON-SMALL CELL LUNG CANCER
     Dosage: 320 MG, Q3W
     Route: 042
     Dates: start: 20070619
  5. ALAVERT [Concomitant]
     Dosage: 10 MG, QD
     Route: 048
     Dates: start: 20080121
  6. ALBUTEROL [Concomitant]
     Dosage: 2 UNK, PRN
     Dates: start: 20070518
  7. ATIVAN [Concomitant]
     Dosage: 1 MG, PRN
     Route: 048
     Dates: start: 20070601
  8. CLARITIN [Concomitant]
  9. COMPAZINE [Concomitant]
     Dosage: 10 MG, PRN
     Route: 048
     Dates: start: 20070619
  10. DEXAMETHASONE [Concomitant]
     Indication: PREMEDICATION
     Dosage: 4 MG, UNK
     Route: 048
  11. DEXFOL [Concomitant]
     Dosage: 1 UNK, QD
  12. FOLIC ACID [Concomitant]
     Dosage: 1 TABLET, QD
     Route: 048
  13. GUAIFENESIN [Concomitant]
     Indication: COUGH
     Dosage: 5 ML, Q6H
     Route: 048
  14. LOMOTIL [Concomitant]
     Dosage: 2 TABLET, PRN
     Route: 048
     Dates: start: 20070619
  15. MUCINEX [Concomitant]
     Dosage: UNK, BID
     Route: 048
  16. QVAR 40 [Concomitant]
     Dosage: 40 ?G, BID
  17. RANITIDINE HCL [Concomitant]
     Dosage: 150 ?G, BID
     Route: 048
  18. TIOTROPIUM BROMIDE [Concomitant]
     Dosage: 18 ?G, SINGLE
     Dates: start: 20070518
  19. VICODIN [Concomitant]
     Dosage: UNK TABLET, PRN
     Route: 048
     Dates: start: 20070518

REACTIONS (1)
  - HAEMOPTYSIS [None]
